FAERS Safety Report 15642663 (Version 1)
Quarter: 2018Q4

REPORT INFORMATION
  Report Type: Spontaneous
  Country: US (occurrence: US)
  Receive Date: 20181120
  Receipt Date: 20181120
  Transmission Date: 20190205
  Serious: Yes (Other)
  Sender: FDA-Public Use
  Company Number: None

PATIENT
  Age: 74 Year
  Sex: Male
  Weight: 81.45 kg

DRUGS (13)
  1. TEMAZEPAM. [Concomitant]
     Active Substance: TEMAZEPAM
  2. BACTRIM [Concomitant]
     Active Substance: SULFAMETHOXAZOLE\TRIMETHOPRIM
  3. GLUCOSAMINE CHONDROITIN PLUS [Concomitant]
  4. FOLIC ACID. [Concomitant]
     Active Substance: FOLIC ACID
  5. ACYCLOVIR. [Concomitant]
     Active Substance: ACYCLOVIR
  6. RAMIPRIL. [Concomitant]
     Active Substance: RAMIPRIL
  7. NINLARO [Suspect]
     Active Substance: IXAZOMIB CITRATE
     Indication: PLASMA CELL MYELOMA
     Dosage: ?          OTHER FREQUENCY:DAYS 1, 8 AND 15;?
     Route: 048
     Dates: start: 20180625
  8. NEXIUM [Concomitant]
     Active Substance: ESOMEPRAZOLE MAGNESIUM
  9. CALCIUM+VIT D [Concomitant]
  10. GABAPENTIN. [Concomitant]
     Active Substance: GABAPENTIN
  11. OXYCODONE [Concomitant]
     Active Substance: OXYCODONE
  12. COLESTID [Concomitant]
     Active Substance: COLESTIPOL HYDROCHLORIDE
  13. REVLIMID [Concomitant]
     Active Substance: LENALIDOMIDE

REACTIONS (2)
  - Neuropathy peripheral [None]
  - Diarrhoea [None]

NARRATIVE: CASE EVENT DATE: 20181119
